FAERS Safety Report 23637428 (Version 1)
Quarter: 2024Q1

REPORT INFORMATION
  Report Type: Spontaneous
  Country: US (occurrence: US)
  Receive Date: 20240315
  Receipt Date: 20240315
  Transmission Date: 20240409
  Serious: No
  Sender: FDA-Public Use
  Company Number: US-AZURITY PHARMACEUTICALS, INC.-US-2024AZR000096

PATIENT
  Age: 42 Year
  Sex: Female
  Weight: 47.211 kg

DRUGS (1)
  1. KONVOMEP [Suspect]
     Active Substance: OMEPRAZOLE\SODIUM BICARBONATE
     Indication: Gastrooesophageal reflux disease
     Dosage: 10 ML, BID
     Route: 065
     Dates: start: 20240105, end: 20240123

REACTIONS (5)
  - Product prescribing issue [Unknown]
  - Product use in unapproved indication [Unknown]
  - Off label use [Unknown]
  - Poor quality product administered [Unknown]
  - Liquid product physical issue [Unknown]

NARRATIVE: CASE EVENT DATE: 20240105
